FAERS Safety Report 15042483 (Version 2)
Quarter: 2019Q3

REPORT INFORMATION
  Report Type: Spontaneous
  Country: IT (occurrence: IT)
  Receive Date: 20180621
  Receipt Date: 20190724
  Transmission Date: 20191004
  Serious: Yes (Death, Other)
  Sender: FDA-Public Use
  Company Number: IT-ELI_LILLY_AND_COMPANY-IT201806009219

PATIENT
  Age: 65 Year
  Sex: Male

DRUGS (1)
  1. HUMULIN R [Suspect]
     Active Substance: INSULIN HUMAN
     Indication: PRODUCT USED FOR UNKNOWN INDICATION
     Dosage: UNK, UNKNOWN
     Route: 065

REACTIONS (8)
  - Pulmonary alveolar haemorrhage [Not Recovered/Not Resolved]
  - Completed suicide [Fatal]
  - Intentional overdose [Fatal]
  - Pulmonary oedema [Not Recovered/Not Resolved]
  - Visceral congestion [Not Recovered/Not Resolved]
  - Toxicity to various agents [Fatal]
  - Hypoglycaemia [Fatal]
  - Incorrect route of product administration [Unknown]
